FAERS Safety Report 7307264-5 (Version None)
Quarter: 2011Q1

REPORT INFORMATION
  Report Type: 
  Country: None (occurrence: None)
  Receive Date: 20110223
  Receipt Date: 20110217
  Transmission Date: 20110831
  Serious: No
  Sender: FDA-Public Use
  Company Number: US-PFIZER INC-2011035676

PATIENT
  Sex: Female
  Weight: 70.295 kg

DRUGS (4)
  1. HYZAAR [Concomitant]
     Indication: HYPERTENSION
     Dosage: 25/100 MG,
     Route: 048
  2. ZOCOR [Concomitant]
     Indication: BLOOD CHOLESTEROL INCREASED
     Dosage: 20 MG, 1X/DAY
     Route: 048
  3. MIRAPEX [Concomitant]
     Indication: RESTLESS LEGS SYNDROME
     Dosage: 0.5 MG, 1X/DAY
     Route: 048
  4. TOVIAZ [Suspect]
     Indication: MICTURITION URGENCY
     Dosage: 8 MG, 1X/DAY
     Route: 048
     Dates: start: 20110127

REACTIONS (2)
  - ABDOMINAL PAIN UPPER [None]
  - INAPPROPRIATE SCHEDULE OF DRUG ADMINISTRATION [None]
